FAERS Safety Report 10386282 (Version 1)
Quarter: 2014Q3

REPORT INFORMATION
  Report Type: Spontaneous
  Country: IR (occurrence: IR)
  Receive Date: 20140815
  Receipt Date: 20140815
  Transmission Date: 20150326
  Serious: Yes (Other)
  Sender: FDA-Public Use
  Company Number: PHHY2014IR097012

PATIENT
  Age: 21 Year
  Sex: Male

DRUGS (2)
  1. METHADONE [Concomitant]
     Active Substance: METHADONE HYDROCHLORIDE
     Dosage: 400 MG, UNK
  2. TRAMADOL [Suspect]
     Active Substance: TRAMADOL
     Dosage: 2 G, UNK

REACTIONS (5)
  - Joint dislocation [Unknown]
  - Toxicity to various agents [Unknown]
  - Loss of consciousness [Recovered/Resolved]
  - Generalised tonic-clonic seizure [Unknown]
  - Musculoskeletal pain [Unknown]
